FAERS Safety Report 9504403 (Version 1)
Quarter: 2013Q1

REPORT INFORMATION
  Report Type: Spontaneous
  Country: US (occurrence: None)
  Receive Date: 20130225
  Receipt Date: 20130225
  Transmission Date: 20140127
  Serious: No
  Sender: FDA-Public Use
  Company Number: 369855

PATIENT
  Age: 84 Year
  Sex: Male
  Weight: 108.8 kg

DRUGS (8)
  1. VICTOZA (LIRAGLUTIDE) SOLUTION FOR INJECTION, 6 MG/ML [Suspect]
     Indication: TYPE 2 DIABETES MELLITUS
     Route: 058
     Dates: start: 20120620, end: 20121213
  2. GLIPIZIDE (GLIPIZIDE) [Concomitant]
  3. JANUVIA (SITAGLIPTIN PHOSPHATE) [Concomitant]
  4. DIOVAN (VALSARTAN) [Concomitant]
  5. ASPIRIN (ACETYOSALICYLIC ACID) [Concomitant]
  6. CRESTOR (ROSUVASTATIN CALCIUM) [Concomitant]
  7. IMDUR (ISOSORBIDE MONONITRATE) [Concomitant]
  8. BUMETANIDE (BUMETANIDE) [Concomitant]

REACTIONS (1)
  - Dyspnoea [None]
